FAERS Safety Report 4371795-0 (Version None)
Quarter: 2004Q2

REPORT INFORMATION
  Report Type: 
  Country: None (occurrence: None)
  Receive Date: 20040604
  Receipt Date: 20040604
  Transmission Date: 20050107
  Serious: Yes (Hospitalization)
  Sender: FDA-Public Use
  Company Number: None

PATIENT
  Age: 57 Year
  Sex: Male
  Weight: 51.7101 kg

DRUGS (6)
  1. CELEBREX [Suspect]
  2. TAXOL [Suspect]
  3. CARBOPLATIN [Suspect]
  4. RADIATION [Suspect]
  5. ROXANOL [Concomitant]
  6. MAGIC MOUTHWASH [Concomitant]

REACTIONS (6)
  - HAEMOGLOBIN DECREASED [None]
  - LUNG INFECTION [None]
  - METASTASES TO LUNG [None]
  - NEOPLASM RECURRENCE [None]
  - SKIN FISSURES [None]
  - THERAPY NON-RESPONDER [None]
